FAERS Safety Report 12189082 (Version 4)
Quarter: 2016Q4

REPORT INFORMATION
  Report Type: Report from Study
  Country: US (occurrence: US)
  Receive Date: 20160317
  Receipt Date: 20161017
  Transmission Date: 20170207
  Serious: Yes (Hospitalization)
  Sender: FDA-Public Use
  Company Number: US-ACTELION-A-US2016-132248

PATIENT
  Age: 45 Year
  Sex: Female

DRUGS (2)
  1. OPSUMIT [Suspect]
     Active Substance: MACITENTAN
     Indication: PULMONARY ARTERIAL HYPERTENSION
     Dosage: 10 MG, QD
     Route: 048
     Dates: start: 20160105
  2. XARELTO [Concomitant]
     Active Substance: RIVAROXABAN

REACTIONS (12)
  - Pulmonary arterial hypertension [Not Recovered/Not Resolved]
  - Diabetes mellitus [Unknown]
  - Liver function test increased [Not Recovered/Not Resolved]
  - Head injury [Unknown]
  - Alanine aminotransferase increased [Not Recovered/Not Resolved]
  - Ankle fracture [Recovered/Resolved]
  - Condition aggravated [Not Recovered/Not Resolved]
  - Syncope [Not Recovered/Not Resolved]
  - Right ventricular failure [Not Recovered/Not Resolved]
  - Aspartate aminotransferase increased [Not Recovered/Not Resolved]
  - Pneumonia [Recovered/Resolved]
  - Blood potassium decreased [Unknown]

NARRATIVE: CASE EVENT DATE: 201602
